FAERS Safety Report 8801731 (Version 1)
Quarter: 2012Q4

REPORT INFORMATION
  Report Type: 
  Country: US (occurrence: US)
  Receive Date: 20120921
  Receipt Date: 20120921
  Transmission Date: 20130627
  Serious: No
  Sender: FDA-Public Use
  Company Number: US-PFIZER INC-2012229942

PATIENT

DRUGS (1)
  1. AZITHROMYCIN [Suspect]
     Dosage: 500 mg, UNK

REACTIONS (2)
  - Pruritus [Unknown]
  - Dysgeusia [Unknown]
